FAERS Safety Report 7238099-X (Version None)
Quarter: 2011Q1

REPORT INFORMATION
  Report Type: 
  Country: None (occurrence: None)
  Receive Date: 20110121
  Receipt Date: 20110117
  Transmission Date: 20110831
  Serious: Yes (Other)
  Sender: FDA-Public Use
  Company Number: Z0007459A

PATIENT
  Sex: Male
  Weight: 52 kg

DRUGS (1)
  1. PAZOPANIB [Suspect]
     Indication: RENAL CELL CARCINOMA
     Dosage: 800MG PER DAY
     Route: 048
     Dates: start: 20100226, end: 20100909

REACTIONS (2)
  - NEOPLASM MALIGNANT [None]
  - ANAEMIA [None]
